FAERS Safety Report 4625096-3 (Version None)
Quarter: 2005Q2

REPORT INFORMATION
  Report Type: 
  Country: None (occurrence: None)
  Receive Date: 20050325
  Receipt Date: 20050121
  Transmission Date: 20051028
  Serious: No
  Sender: FDA-Public Use
  Company Number: USA050189014

PATIENT
  Age: 60 Year
  Sex: Male

DRUGS (3)
  1. FORTEO [Suspect]
     Indication: OSTEOPOROSIS
     Dosage: 20 UG/1 DAY
     Dates: start: 20050120
  2. PREDNISONE [Concomitant]
  3. ARAVA [Concomitant]

REACTIONS (4)
  - CHILLS [None]
  - DRY MOUTH [None]
  - LACRIMATION INCREASED [None]
  - VISION BLURRED [None]
